FAERS Safety Report 22908889 (Version 3)
Quarter: 2024Q1

REPORT INFORMATION
  Report Type: Report from Study
  Country: US (occurrence: US)
  Receive Date: 20230905
  Receipt Date: 20240225
  Transmission Date: 20240410
  Serious: Yes (Hospitalization, Other)
  Sender: FDA-Public Use
  Company Number: US-002147023-NVSC2023US037283

PATIENT
  Sex: Female
  Weight: 56.236 kg

DRUGS (6)
  1. TREPROSTINIL [Suspect]
     Active Substance: TREPROSTINIL
     Dosage: 25 NG/KG/ MIN, CONT
     Route: 058
     Dates: start: 20220606
  2. TREPROSTINIL [Suspect]
     Active Substance: TREPROSTINIL
     Indication: Pulmonary arterial hypertension
     Dosage: 25 NG/KG/MIN, CONTINUOUS
     Route: 058
     Dates: start: 20220606
  3. TREPROSTINIL [Suspect]
     Active Substance: TREPROSTINIL
     Dosage: 25 NG/KG/ MIN, CONT
     Route: 058
     Dates: start: 20220606
  4. TREPROSTINIL [Suspect]
     Active Substance: TREPROSTINIL
     Dosage: UNK
     Route: 065
  5. OPSUMIT [Concomitant]
     Active Substance: MACITENTAN
     Indication: Product used for unknown indication
     Dosage: UNK
     Route: 065
  6. SILDENAFIL CITRATE [Concomitant]
     Active Substance: SILDENAFIL CITRATE
     Indication: Product used for unknown indication
     Dosage: UNK
     Route: 065

REACTIONS (9)
  - Pneumonia [Unknown]
  - Hypoaesthesia [Unknown]
  - Injection site pain [Recovered/Resolved]
  - Injection site erythema [Unknown]
  - Pain [Unknown]
  - Injection site mass [Unknown]
  - Injection site haemorrhage [Unknown]
  - Diarrhoea [Unknown]
  - Asthenia [Unknown]
